FAERS Safety Report 6315738-9 (Version None)
Quarter: 2009Q3

REPORT INFORMATION
  Report Type: 
  Country: None (occurrence: None)
  Receive Date: 20090819
  Receipt Date: 20090303
  Transmission Date: 20100115
  Serious: No
  Sender: FDA-Public Use
  Company Number: US-BAUSCH-2009BL000874

PATIENT
  Age: 6 Year
  Sex: Male

DRUGS (1)
  1. CROMOLYN SODIUM [Suspect]
     Indication: HYPERSENSITIVITY
     Route: 045
     Dates: start: 20090217

REACTIONS (2)
  - DYSGEUSIA [None]
  - INCORRECT ROUTE OF DRUG ADMINISTRATION [None]
